FAERS Safety Report 12708436 (Version 1)
Quarter: 2016Q3

REPORT INFORMATION
  Report Type: Spontaneous
  Country: PE (occurrence: PE)
  Receive Date: 20160901
  Receipt Date: 20160901
  Transmission Date: 20161109
  Serious: Yes (Hospitalization, Other)
  Sender: FDA-Public Use
  Company Number: PE-GLAXOSMITHKLINE-PE2016GSK125078

PATIENT
  Age: 91 Year
  Sex: Female

DRUGS (1)
  1. SERETIDE [Suspect]
     Active Substance: FLUTICASONE PROPIONATE\SALMETEROL XINAFOATE
     Indication: PULMONARY FIBROSIS
     Dosage: 125 UNK, QID
     Route: 055
     Dates: start: 20150206

REACTIONS (5)
  - Decubitus ulcer [Recovering/Resolving]
  - Limb injury [Unknown]
  - Cellulitis [Recovering/Resolving]
  - Inflammation [Unknown]
  - Fall [Unknown]

NARRATIVE: CASE EVENT DATE: 20160717
